FAERS Safety Report 7557182-2 (Version None)
Quarter: 2011Q2

REPORT INFORMATION
  Report Type: 
  Country: None (occurrence: None)
  Receive Date: 20110620
  Receipt Date: 20110610
  Transmission Date: 20111010
  Serious: Yes (Hospitalization)
  Sender: FDA-Public Use
  Company Number: US-US-EMD SERONO, INC.-7005246

PATIENT
  Sex: Female

DRUGS (5)
  1. REBIF [Suspect]
     Indication: MULTIPLE SCLEROSIS
     Route: 058
     Dates: start: 20100302, end: 20100527
  2. NIACIN [Concomitant]
  3. DIURETICS [Concomitant]
     Indication: HYPERTENSION
     Dates: start: 20090101, end: 20100501
  4. REQUIP [Concomitant]
     Indication: RESTLESS LEGS SYNDROME
  5. UNSPECIFIED MEDICATION [Concomitant]
     Indication: RESTLESS LEGS SYNDROME

REACTIONS (6)
  - HYPERHIDROSIS [None]
  - INFLUENZA LIKE ILLNESS [None]
  - PALPITATIONS [None]
  - BLOOD PRESSURE INCREASED [None]
  - DYSPNOEA [None]
  - FLUSHING [None]
